FAERS Safety Report 9775560 (Version 1)
Quarter: 2013Q4

REPORT INFORMATION
  Report Type: Spontaneous
  Country: US (occurrence: US)
  Receive Date: 20131220
  Receipt Date: 20131220
  Transmission Date: 20140711
  Serious: No
  Sender: FDA-Public Use
  Company Number: US-BAYER-2013-155798

PATIENT
  Age: 77 Year
  Sex: Female
  Weight: 74.38 kg

DRUGS (6)
  1. ALEVE CAPLET [Suspect]
     Indication: ARTHRITIS
     Dosage: 1 DF, PRN
     Route: 048
  2. GLUCOSAMINE W/CHONDROITIN SULFATE [Concomitant]
  3. ECHINACEA [Concomitant]
  4. FISH OIL [Concomitant]
  5. ACE [Concomitant]
  6. VITAMIN B12 [Concomitant]

REACTIONS (1)
  - Drug ineffective [None]
